FAERS Safety Report 6072300-3 (Version None)
Quarter: 2009Q1

REPORT INFORMATION
  Report Type: 
  Country: None (occurrence: None)
  Receive Date: 20090210
  Receipt Date: 20090131
  Transmission Date: 20090719
  Serious: Yes (Other)
  Sender: FDA-Public Use
  Company Number: CO-MERCK-0902COL00001

PATIENT
  Age: 8 Year
  Sex: Female

DRUGS (1)
  1. SINGULAIR [Suspect]
     Indication: ASTHMA
     Route: 065

REACTIONS (1)
  - SUICIDAL IDEATION [None]
